FAERS Safety Report 10032404 (Version 1)
Quarter: 2014Q1

REPORT INFORMATION
  Report Type: Spontaneous
  Country: NL (occurrence: None)
  Receive Date: 20140320
  Receipt Date: 20140320
  Transmission Date: 20141002
  Serious: Yes (Other)
  Sender: FDA-Public Use
  Company Number: FK201400901

PATIENT
  Sex: Female

DRUGS (5)
  1. PROPOFOL [Suspect]
     Indication: SEDATION
     Dosage: INTRAVENOUS (NOT OTHERWISE SPECIFIED)
     Route: 042
     Dates: start: 20140224
  2. CLEMASTINE (CLEMASTINE) (CLEMASTINE) [Concomitant]
  3. RANITIDINE (RANITIDINE) (RANITIDINE) [Concomitant]
  4. PREDNISOLON (PREDNISOLONE) (PREDNISOLONE) [Concomitant]
  5. NADROPARINE (NADROPARIN CALCIUM) (NADROPARIN CALCIUM) [Concomitant]

REACTIONS (1)
  - Blood lactic acid increased [None]
